FAERS Safety Report 12291217 (Version 1)
Quarter: 2016Q2

REPORT INFORMATION
  Report Type: Spontaneous
  Country: US (occurrence: US)
  Receive Date: 20160421
  Receipt Date: 20160421
  Transmission Date: 20160815
  Serious: No
  Sender: FDA-Public Use
  Company Number: US-AMGEN-USASL2016007406

PATIENT
  Sex: Male

DRUGS (1)
  1. REPATHA [Suspect]
     Active Substance: EVOLOCUMAB
     Indication: PRODUCT USED FOR UNKNOWN INDICATION
     Dosage: UNK
     Route: 065

REACTIONS (5)
  - Flushing [Unknown]
  - Salivary gland disorder [Unknown]
  - Fatigue [Unknown]
  - Pharyngeal oedema [Unknown]
  - Viral infection [Unknown]

NARRATIVE: CASE EVENT DATE: 201511
